FAERS Safety Report 9403644 (Version 6)
Quarter: 2013Q4

REPORT INFORMATION
  Report Type: Spontaneous
  Country: CA (occurrence: CA)
  Receive Date: 20130717
  Receipt Date: 20131230
  Transmission Date: 20140711
  Serious: Yes (Disabling, Other)
  Sender: FDA-Public Use
  Company Number: CA-ROCHE-1247589

PATIENT
  Age: 70 Year
  Sex: Male

DRUGS (13)
  1. XOLAIR [Suspect]
     Indication: ASTHMA
     Route: 058
     Dates: start: 20051005
  2. XOLAIR [Suspect]
     Route: 065
     Dates: start: 20121121
  3. XOLAIR [Suspect]
     Route: 065
     Dates: start: 20130213
  4. XOLAIR [Suspect]
     Route: 065
     Dates: start: 20130313
  5. XOLAIR [Suspect]
     Route: 065
     Dates: start: 20130410
  6. XOLAIR [Suspect]
     Route: 065
     Dates: start: 20130507
  7. XOLAIR [Suspect]
     Route: 065
     Dates: start: 20130605
  8. XOLAIR [Suspect]
     Route: 058
     Dates: start: 20130703
  9. XOLAIR [Suspect]
     Route: 058
     Dates: start: 2005
  10. XOLAIR [Suspect]
     Route: 065
     Dates: start: 20131121
  11. XOLAIR [Suspect]
     Route: 058
     Dates: start: 20131218
  12. SYMBICORT [Concomitant]
     Dosage: 200/6 MCG
     Route: 065
  13. ZENHALE [Concomitant]
     Dosage: 22/5 MCG
     Route: 065
     Dates: start: 201307

REACTIONS (19)
  - Deep vein thrombosis [Recovering/Resolving]
  - Post thrombotic syndrome [Recovering/Resolving]
  - Tendon rupture [Recovering/Resolving]
  - Blood pressure increased [Not Recovered/Not Resolved]
  - Influenza [Unknown]
  - Feeling abnormal [Unknown]
  - Nasopharyngitis [Unknown]
  - Sinusitis [Unknown]
  - Ear infection [Unknown]
  - Sinus disorder [Unknown]
  - Stress [Unknown]
  - Respiratory disorder [Unknown]
  - Wheezing [Unknown]
  - Psoriasis [Unknown]
  - Heart rate decreased [Recovered/Resolved]
  - Asthma [Unknown]
  - Cellulitis [Not Recovered/Not Resolved]
  - Thrombosis [Unknown]
  - Body temperature decreased [Unknown]
